FAERS Safety Report 10372522 (Version 2)
Quarter: 2014Q3

REPORT INFORMATION
  Report Type: Spontaneous
  Country: US (occurrence: US)
  Receive Date: 20140808
  Receipt Date: 20140808
  Transmission Date: 20150326
  Serious: Yes (Other)
  Sender: FDA-Public Use
  Company Number: US-BRISTOL-MYERS SQUIBB COMPANY-19155969

PATIENT
  Age: 53 Year
  Sex: Female

DRUGS (1)
  1. SPRYCEL [Suspect]
     Active Substance: DASATINIB
     Indication: CHRONIC MYELOID LEUKAEMIA
     Dosage: INTER FOR 4 DAYS,RESTARTED  ON JAN14?LOT NO:3F6011B
     Route: 048
     Dates: start: 20130605

REACTIONS (3)
  - Gastrointestinal ulcer [Unknown]
  - Full blood count decreased [Unknown]
  - Balance disorder [Unknown]
